FAERS Safety Report 18545412 (Version 2)
Quarter: 2021Q2

REPORT INFORMATION
  Report Type: Report from Study
  Country: US (occurrence: US)
  Receive Date: 20201125
  Receipt Date: 20210526
  Transmission Date: 20210717
  Serious: Yes (Hospitalization)
  Sender: FDA-Public Use
  Company Number: US-TAKEDA-2020TUS048829

PATIENT
  Sex: Female
  Weight: 53 kg

DRUGS (19)
  1. EPINEPHRINE. [Concomitant]
     Active Substance: EPINEPHRINE
  2. PLAVIX [Concomitant]
     Active Substance: CLOPIDOGREL BISULFATE
  3. METOPROLOL SUCCINATE. [Concomitant]
     Active Substance: METOPROLOL SUCCINATE
  4. HUMAN IMMUNOGLOBULIN; HYALURONIDASE [Suspect]
     Active Substance: HUMAN IMMUNOGLOBULIN G\HYALURONIDASE RECOMBINANT HUMAN
     Indication: IMMUNODEFICIENCY COMMON VARIABLE
     Dosage: 20 GRAM, Q4WEEKS
     Route: 058
     Dates: start: 20160610
  5. PRILOCAINE [Concomitant]
     Active Substance: PRILOCAINE
     Indication: PRODUCT USED FOR UNKNOWN INDICATION
  6. SULFAMETHOXAZOLE;TRIMETHOPRIM [Concomitant]
     Active Substance: SULFAMETHOXAZOLE\TRIMETHOPRIM
  7. LIPITOR [Concomitant]
     Active Substance: ATORVASTATIN CALCIUM
  8. CALCIUM 600 WITH VITAMIN D3 [Concomitant]
     Active Substance: CALCIUM CARBONATE\VITAMIN D
  9. CARBIDOPA?LEVODOPA?B [Concomitant]
     Active Substance: CARBIDOPA\LEVODOPA
  10. LIDOCAINE. [Concomitant]
     Active Substance: LIDOCAINE
  11. PEPCID [Concomitant]
     Active Substance: FAMOTIDINE
  12. KLOR?CON [Concomitant]
     Active Substance: POTASSIUM CHLORIDE
  13. BACTRIM [Concomitant]
     Active Substance: SULFAMETHOXAZOLE\TRIMETHOPRIM
  14. ACETAMINOPHEN. [Concomitant]
     Active Substance: ACETAMINOPHEN
  15. GABAPENTIN. [Concomitant]
     Active Substance: GABAPENTIN
  16. DYMISTA [Concomitant]
     Active Substance: AZELASTINE HYDROCHLORIDE\FLUTICASONE PROPIONATE
  17. DIPHENHYDRAMINE. [Concomitant]
     Active Substance: DIPHENHYDRAMINE
  18. NORMAL SALINE [Concomitant]
     Active Substance: SODIUM CHLORIDE
  19. ASPIRIN (E.C.) [Concomitant]
     Active Substance: ASPIRIN

REACTIONS (4)
  - Fall [Unknown]
  - Joint injury [Unknown]
  - Infusion site swelling [Unknown]
  - Device infusion issue [Unknown]
